FAERS Safety Report 4407718-5 (Version None)
Quarter: 2004Q3

REPORT INFORMATION
  Report Type: 
  Country: None (occurrence: None)
  Receive Date: 20040726
  Receipt Date: 20031121
  Transmission Date: 20050211
  Serious: Yes (Disabling, Other)
  Sender: FDA-Public Use
  Company Number: US-MERCK-0311USA02542

PATIENT
  Age: 32 Year
  Sex: Female
  Weight: 74 kg

DRUGS (17)
  1. TYLENOL [Concomitant]
     Route: 065
     Dates: start: 19980101
  2. VICODIN [Concomitant]
     Route: 065
  3. CALCIUM (UNSPECIFIED) [Concomitant]
     Route: 065
  4. ORTHO-NOVUM 7/7/7-21 [Concomitant]
     Route: 065
  5. ADVIL [Concomitant]
     Route: 065
     Dates: start: 19980101
  6. LITHOBID [Concomitant]
     Route: 065
  7. METHADONE HCL [Concomitant]
     Route: 065
  8. OXYCONTIN [Concomitant]
     Route: 065
  9. PAXIL [Concomitant]
     Route: 065
  10. VIOXX [Suspect]
     Indication: RHEUMATOID ARTHRITIS
     Route: 048
     Dates: start: 20000401, end: 20021001
  11. VIOXX [Suspect]
     Route: 048
  12. VIOXX [Suspect]
     Indication: RIB FRACTURE
     Route: 048
     Dates: start: 20000401, end: 20021001
  13. VIOXX [Suspect]
     Route: 048
  14. ZOLOFT [Concomitant]
     Route: 065
  15. ULTRAM [Concomitant]
     Route: 065
  16. TRAZODONE HYDROCHLORIDE [Concomitant]
     Route: 065
  17. VITAMIN D (UNSPECIFIED) [Concomitant]
     Route: 065

REACTIONS (9)
  - ANXIETY [None]
  - CEREBROVASCULAR ACCIDENT [None]
  - CHRONIC FATIGUE SYNDROME [None]
  - DEPRESSION [None]
  - FIBROMYALGIA [None]
  - GASTROOESOPHAGEAL REFLUX DISEASE [None]
  - HEADACHE [None]
  - INTERVERTEBRAL DISC DEGENERATION [None]
  - OSTEOMALACIA [None]
